FAERS Safety Report 7368979-6 (Version None)
Quarter: 2011Q1

REPORT INFORMATION
  Report Type: 
  Country: None (occurrence: None)
  Receive Date: 20110323
  Receipt Date: 20100826
  Transmission Date: 20110831
  Serious: Yes (Other)
  Sender: FDA-Public Use
  Company Number: US-BAYER-201025680NA

PATIENT
  Sex: Female
  Weight: 58.957 kg

DRUGS (5)
  1. AMOXICILLIN [Concomitant]
     Route: 065
     Dates: start: 20080101, end: 20100101
  2. YASMIN [Suspect]
     Indication: PRODUCT USED FOR UNKNOWN INDICATION
     Route: 048
  3. FOLIC ACID [Concomitant]
     Route: 065
     Dates: start: 19980101
  4. YAZ [Suspect]
     Indication: PRODUCT USED FOR UNKNOWN INDICATION
     Route: 048
     Dates: start: 20070313, end: 20091101
  5. YAZ [Suspect]
     Route: 048
     Dates: start: 20070313, end: 20091101

REACTIONS (6)
  - NAUSEA [None]
  - BILIARY COLIC [None]
  - CHOLECYSTITIS CHRONIC [None]
  - CHOLELITHIASIS [None]
  - ABDOMINAL PAIN UPPER [None]
  - LIVER FUNCTION TEST ABNORMAL [None]
